FAERS Safety Report 23191873 (Version 2)
Quarter: 2024Q1

REPORT INFORMATION
  Report Type: Spontaneous
  Country: US (occurrence: US)
  Receive Date: 20231116
  Receipt Date: 20240214
  Transmission Date: 20240410
  Serious: No
  Sender: FDA-Public Use
  Company Number: US-BAYER-2023A155328

PATIENT
  Age: 34 Year
  Sex: Female
  Weight: 67.13 kg

DRUGS (2)
  1. MIRENA [Suspect]
     Active Substance: LEVONORGESTREL
     Indication: Contraception
     Dosage: 20?G/DAY
     Route: 015
     Dates: start: 20231024, end: 20231024
  2. ENOXAPARIN SODIUM [Concomitant]
     Active Substance: ENOXAPARIN SODIUM

REACTIONS (3)
  - Complication of device insertion [Recovered/Resolved]
  - Medical device discomfort [None]
  - Uterine cervix stenosis [None]

NARRATIVE: CASE EVENT DATE: 20231024
